FAERS Safety Report 7338576-7 (Version None)
Quarter: 2011Q1

REPORT INFORMATION
  Report Type: 
  Country: None (occurrence: None)
  Receive Date: 20110308
  Receipt Date: 20110223
  Transmission Date: 20110831
  Serious: Yes (Other)
  Sender: FDA-Public Use
  Company Number: SI-ELI_LILLY_AND_COMPANY-SI200803001517

PATIENT
  Age: 37 Year
  Sex: Female

DRUGS (6)
  1. PREXANIL [Concomitant]
     Dosage: UNK, UNKNOWN
  2. CONCOR [Concomitant]
     Indication: HYPERTENSION
     Dosage: UNK, UNKNOWN
  3. PERINDOPRIL [Concomitant]
     Indication: HYPERTENSION
     Dosage: UNK, UNKNOWN
  4. CYMBALTA [Suspect]
     Indication: PANIC ATTACK
     Dosage: 60 MG, UNK
     Route: 048
     Dates: start: 20070101, end: 20080225
  5. TERTENSIF [Concomitant]
     Indication: HYPERTENSION
     Dosage: UNK, UNKNOWN
     Route: 065
  6. NEXIUM [Concomitant]
     Indication: HYPERTENSION
     Dosage: UNK, UNKNOWN

REACTIONS (2)
  - OFF LABEL USE [None]
  - EPILEPSY [None]
